FAERS Safety Report 21446680 (Version 3)
Quarter: 2022Q4

REPORT INFORMATION
  Report Type: Spontaneous
  Country: AU (occurrence: AU)
  Receive Date: 20221012
  Receipt Date: 20221110
  Transmission Date: 20230113
  Serious: Yes (Other)
  Sender: FDA-Public Use
  Company Number: AU-PFIZER INC-202201177498

PATIENT
  Age: 69 Year
  Sex: Male

DRUGS (1)
  1. CAVERJECT IMPULSE [Suspect]
     Active Substance: ALPROSTADIL
     Dosage: 20 UG
     Dates: start: 20220920

REACTIONS (11)
  - Product communication issue [Unknown]
  - Product use complaint [Unknown]
  - Device use issue [Unknown]
  - Incorrect dose administered by device [Unknown]
  - Priapism [Unknown]
  - Erection increased [Unknown]
  - Disease recurrence [Unknown]
  - Paraesthesia [Unknown]
  - Pain in extremity [Unknown]
  - Arthralgia [Unknown]
  - Pain [Unknown]
